FAERS Safety Report 8975483 (Version 3)
Quarter: 2013Q1

REPORT INFORMATION
  Report Type: Spontaneous
  Country: US (occurrence: US)
  Receive Date: 20121219
  Receipt Date: 20130327
  Transmission Date: 20140127
  Serious: No
  Sender: FDA-Public Use
  Company Number: US-PFIZER INC-2012318083

PATIENT
  Age: 77 Year
  Sex: Female

DRUGS (2)
  1. AROMASIN [Suspect]
     Indication: BREAST CANCER FEMALE
     Dosage: 25 MG, 1X/DAY
     Dates: start: 20120927
  2. AROMASIN [Suspect]
     Dosage: UNK

REACTIONS (2)
  - Disease recurrence [Unknown]
  - Breast cancer female [Unknown]
